FAERS Safety Report 8999348 (Version 2)
Quarter: 2013Q1

REPORT INFORMATION
  Report Type: Spontaneous
  Country: US (occurrence: US)
  Receive Date: 20130103
  Receipt Date: 20130128
  Transmission Date: 20140127
  Serious: Yes (Other)
  Sender: FDA-Public Use
  Company Number: US-PFIZER INC-2013001232

PATIENT
  Age: 69 Year
  Sex: Female

DRUGS (4)
  1. ATENOLOL [Suspect]
     Indication: VENTRICULAR EXTRASYSTOLES
     Dosage: 50 MG, 2X/DAY
  2. LIPITOR [Suspect]
  3. ATORVASTATIN CALCIUM [Suspect]
     Indication: BLOOD CHOLESTEROL INCREASED
     Dosage: 40 MG, DAILY
     Dates: start: 20120613, end: 20120815
  4. LISINOPRIL [Concomitant]
     Indication: HYPERTENSION
     Dosage: 20 MG, 2X/DAY

REACTIONS (3)
  - Renal impairment [Recovered/Resolved]
  - Renal cyst [Recovered/Resolved]
  - Drug ineffective [Unknown]
